FAERS Safety Report 4656900-0 (Version None)
Quarter: 2005Q2

REPORT INFORMATION
  Report Type: 
  Country: None (occurrence: None)
  Receive Date: 20050408
  Receipt Date: 20050124
  Transmission Date: 20051028
  Serious: No
  Sender: FDA-Public Use
  Company Number: 230298K05USA

PATIENT
  Age: 58 Year
  Sex: Female

DRUGS (1)
  1. REBIF [Suspect]
     Indication: MULTIPLE SCLEROSIS
     Dosage: 44 MCG, 3 IN 1 WEEKS, SUBCUTANEOUS
     Route: 058
     Dates: start: 20030820

REACTIONS (3)
  - FACIAL PAIN [None]
  - HEADACHE [None]
  - HERPES SIMPLEX [None]
